FAERS Safety Report 6702202-8 (Version None)
Quarter: 2010Q2

REPORT INFORMATION
  Report Type: 
  Country: None (occurrence: None)
  Receive Date: 20100429
  Receipt Date: 20100419
  Transmission Date: 20101027
  Serious: Yes (Hospitalization)
  Sender: FDA-Public Use
  Company Number: FR-PFIZER INC-2010048767

PATIENT
  Age: 89 Year
  Sex: Female

DRUGS (9)
  1. TAHOR [Suspect]
     Dosage: 10 MG, 1X/DAY
     Route: 048
     Dates: start: 20100107, end: 20100210
  2. FONZYLANE [Suspect]
     Dosage: 150 MG, 2X/DAY
     Route: 048
     Dates: start: 20100108, end: 20100301
  3. DURAGESIC-100 [Suspect]
     Dosage: 12 A?G/H (2.1 MG/5.25 CM2), 1 PATCH EVERY 3 DAYS
     Route: 003
     Dates: start: 20100108, end: 20100301
  4. FUROSEMIDE [Suspect]
     Dosage: 40 MG, 1X/DAY
     Route: 048
     Dates: end: 20100301
  5. NEBIVOLOL [Concomitant]
  6. PLAVIX [Concomitant]
  7. CORDARONE [Concomitant]
  8. RAMIPRIL [Concomitant]
  9. DAFALGAN [Concomitant]

REACTIONS (2)
  - PRURITUS GENERALISED [None]
  - RASH GENERALISED [None]
